FAERS Safety Report 13899771 (Version 1)
Quarter: 2017Q3

REPORT INFORMATION
  Report Type: Spontaneous
  Country: US (occurrence: US)
  Receive Date: 20170823
  Receipt Date: 20170823
  Transmission Date: 20171127
  Serious: No
  Sender: FDA-Public Use
  Company Number: US-TEVA-799493ACC

PATIENT
  Age: 19 Year
  Sex: Female
  Weight: 170.25 kg

DRUGS (2)
  1. PROZAC [Concomitant]
     Active Substance: FLUOXETINE HYDROCHLORIDE
  2. PARAGARD T 380A [Suspect]
     Active Substance: COPPER
     Indication: CONTRACEPTION
     Dates: start: 20170814

REACTIONS (1)
  - Dysmenorrhoea [Not Recovered/Not Resolved]

NARRATIVE: CASE EVENT DATE: 20170816
